FAERS Safety Report 6074782-X (Version None)
Quarter: 2009Q1

REPORT INFORMATION
  Report Type: 
  Country: None (occurrence: None)
  Receive Date: 20090210
  Receipt Date: 20090126
  Transmission Date: 20090719
  Serious: Yes (Death)
  Sender: FDA-Public Use
  Company Number: 064

PATIENT
  Age: 61 Year
  Sex: Female

DRUGS (1)
  1. FAZACLO ODT [Suspect]
     Dosage: 500 MG PO DAILY
     Dates: start: 20051007, end: 20060717

REACTIONS (4)
  - ACCIDENTAL DEATH [None]
  - ASPHYXIA [None]
  - ASPIRATION [None]
  - OBSTRUCTIVE AIRWAYS DISORDER [None]
